FAERS Safety Report 8495282-3 (Version None)
Quarter: 2012Q3

REPORT INFORMATION
  Report Type: 
  Country: None (occurrence: None)
  Receive Date: 20120702
  Receipt Date: 20120702
  Transmission Date: 20120928
  Serious: Yes (Other)
  Sender: FDA-Public Use
  Company Number: None

PATIENT
  Age: 26 Year
  Sex: Female
  Weight: 62.5964 kg

DRUGS (1)
  1. L'IL CRITTERS OMEGA 3 DHA GUMMY 200 MG L'IL CRITTERS [Suspect]
     Dosage: 2 GUMMIES ONCE DAILY PO
     Route: 048
     Dates: start: 20111201, end: 20120430

REACTIONS (2)
  - LARGE INTESTINAL HAEMORRHAGE [None]
  - RECTAL HAEMORRHAGE [None]
